FAERS Safety Report 6084064-8 (Version None)
Quarter: 2009Q1

REPORT INFORMATION
  Report Type: 
  Country: None (occurrence: None)
  Receive Date: 20090219
  Receipt Date: 20090209
  Transmission Date: 20090719
  Serious: Yes (Other)
  Sender: FDA-Public Use
  Company Number: US-SOLVAY-00208005778

PATIENT
  Age: 78 Year
  Sex: Male
  Weight: 102 kg

DRUGS (5)
  1. UNKNOWN THYROID MEDICATION [Concomitant]
     Indication: HYPOTHYROIDISM
     Dosage: DAILY DOSE:  UNKNOWN
     Route: 048
  2. ANDROGEL [Suspect]
     Indication: BLOOD TESTOSTERONE DECREASED
     Dosage: DAILY DOSE: 5 GRAM(S) VIA PUMP
     Route: 062
     Dates: start: 20081126, end: 20081129
  3. AVODART [Concomitant]
     Indication: PROSTATOMEGALY
     Dosage: DAILY DOSE:  UNKNOWN
     Route: 048
  4. FLOMAX [Concomitant]
     Indication: PROSTATOMEGALY
     Dosage: DAILY DOSE:  UNKNOWN
     Route: 048
  5. LIPITOR [Concomitant]
     Indication: BLOOD CHOLESTEROL INCREASED
     Dosage: DAILY DOSE:  UNKNOWN
     Route: 048
     Dates: start: 20081126

REACTIONS (1)
  - DEEP VEIN THROMBOSIS [None]
